FAERS Safety Report 6600419-4 (Version None)
Quarter: 2010Q1

REPORT INFORMATION
  Report Type: 
  Country: None (occurrence: None)
  Receive Date: 20100224
  Receipt Date: 20100215
  Transmission Date: 20100710
  Serious: Yes (Death)
  Sender: FDA-Public Use
  Company Number: IT-GENENTECH-258848

PATIENT
  Age: 59 Year
  Sex: Female

DRUGS (2)
  1. RITUXAN [Suspect]
     Indication: LYMPHOPROLIFERATIVE DISORDER
     Dosage: 375 MG/M2, Q28D
     Dates: start: 20040701, end: 20040901
  2. FLUDARABINE [Suspect]
     Indication: LYMPHOPROLIFERATIVE DISORDER
     Dosage: 40 MG/M2, QDX5D/28DC
     Dates: start: 20040701, end: 20040901

REACTIONS (3)
  - LEUKOPENIA [None]
  - PROGRESSIVE MULTIFOCAL LEUKOENCEPHALOPATHY [None]
  - THROMBOCYTOPENIA [None]
